FAERS Safety Report 20019848 (Version 4)
Quarter: 2022Q1

REPORT INFORMATION
  Report Type: Report from Study
  Country: DE (occurrence: DE)
  Receive Date: 20211101
  Receipt Date: 20220117
  Transmission Date: 20220423
  Serious: Yes (Death, Hospitalization, Other)
  Sender: FDA-Public Use
  Company Number: DE-BoehringerIngelheim-2021-BI-134755

PATIENT
  Age: 68 Year
  Sex: Male
  Weight: 91 kg

DRUGS (7)
  1. NINTEDANIB [Suspect]
     Active Substance: NINTEDANIB
     Indication: Lung adenocarcinoma
     Dosage: 1-0-1
     Route: 048
     Dates: start: 20211020, end: 20211025
  2. NINTEDANIB [Suspect]
     Active Substance: NINTEDANIB
     Dosage: 1-0-1
     Route: 048
     Dates: start: 20211124, end: 20211129
  3. NINTEDANIB [Suspect]
     Active Substance: NINTEDANIB
     Dosage: 1-0-1
     Route: 048
     Dates: start: 20211201, end: 20211207
  4. NINTEDANIB [Suspect]
     Active Substance: NINTEDANIB
     Dosage: 1-0-1
     Route: 048
     Dates: start: 20211209, end: 20211220
  5. NINTEDANIB [Suspect]
     Active Substance: NINTEDANIB
     Dosage: 1-0-1
     Route: 048
     Dates: start: 20211222, end: 20211230
  6. DOCETAXEL [Suspect]
     Active Substance: DOCETAXEL
     Indication: Lung adenocarcinoma
     Dosage: FORM OF ADMIN: LIQUID
     Route: 042
     Dates: start: 20211019, end: 20211221
  7. PREDNISOLONE [Concomitant]
     Active Substance: PREDNISOLONE
     Indication: Myasthenia gravis
     Dates: start: 20211012

REACTIONS (10)
  - Sepsis [Fatal]
  - Pneumonia [Fatal]
  - Infection [Recovered/Resolved]
  - Pneumonia [Not Recovered/Not Resolved]
  - Blood bilirubin increased [Recovered/Resolved]
  - Urinary tract infection [Not Recovered/Not Resolved]
  - Nausea [Not Recovered/Not Resolved]
  - Vomiting [Not Recovered/Not Resolved]
  - Diarrhoea [Not Recovered/Not Resolved]
  - Blood bilirubin increased [Recovered/Resolved]

NARRATIVE: CASE EVENT DATE: 20211025
